FAERS Safety Report 5479896-0 (Version None)
Quarter: 2007Q4

REPORT INFORMATION
  Report Type: 
  Country: None (occurrence: None)
  Receive Date: 20071008
  Receipt Date: 20071005
  Transmission Date: 20080405
  Serious: No
  Sender: FDA-Public Use
  Company Number: US-BOEHRINGER INGELHEIM PHARMACEUTICALS, INC.-2007-BP-18716BP

PATIENT
  Sex: Female

DRUGS (9)
  1. SPIRIVA [Suspect]
     Indication: CHRONIC OBSTRUCTIVE PULMONARY DISEASE
     Route: 055
     Dates: start: 20070701
  2. AMBIEN [Concomitant]
     Indication: INSOMNIA
  3. PROTONIX [Concomitant]
  4. LEVOTHYROXINE SODIUM [Concomitant]
  5. PROPRANOLOL [Concomitant]
  6. CYMBALTA [Concomitant]
     Indication: BIPOLAR DISORDER
  7. SINGULAIR [Concomitant]
  8. SEROQUEL [Concomitant]
     Indication: BIPOLAR DISORDER
  9. DEPAKOTE [Concomitant]
     Indication: BIPOLAR DISORDER

REACTIONS (9)
  - ABDOMINAL PAIN [None]
  - DRY MOUTH [None]
  - HEAD DISCOMFORT [None]
  - LIP DRY [None]
  - LYMPHADENOPATHY [None]
  - NASAL CONGESTION [None]
  - PHARYNGOLARYNGEAL PAIN [None]
  - SENSITIVITY OF TEETH [None]
  - THERAPEUTIC RESPONSE DECREASED [None]
